FAERS Safety Report 16187569 (Version 1)
Quarter: 2019Q2

REPORT INFORMATION
  Report Type: Report from Study
  Country: US (occurrence: US)
  Receive Date: 20190412
  Receipt Date: 20190412
  Transmission Date: 20190711
  Serious: Yes (Other)
  Sender: FDA-Public Use
  Company Number: US-ACCORD-120199

PATIENT
  Age: 43 Year
  Sex: Female

DRUGS (4)
  1. IRINOTECAN [Suspect]
     Active Substance: IRINOTECAN
     Indication: K-RAS GENE MUTATION
  2. FOLINIC ACID [Suspect]
     Active Substance: LEUCOVORIN
     Indication: K-RAS GENE MUTATION
  3. BEVACIZUMAB. [Suspect]
     Active Substance: BEVACIZUMAB
     Indication: K-RAS GENE MUTATION
  4. FLUOROURACIL. [Suspect]
     Active Substance: FLUOROURACIL
     Indication: K-RAS GENE MUTATION

REACTIONS (2)
  - Diarrhoea [Unknown]
  - Pulmonary embolism [Unknown]
